FAERS Safety Report 10034644 (Version 3)
Quarter: 2014Q2

REPORT INFORMATION
  Report Type: Spontaneous
  Country: US (occurrence: US)
  Receive Date: 20140325
  Receipt Date: 20140626
  Transmission Date: 20141212
  Serious: Yes (Other)
  Sender: FDA-Public Use
  Company Number: US-PFIZER INC-2014077925

PATIENT
  Age: 57 Year
  Sex: Female

DRUGS (5)
  1. LIPITOR [Suspect]
     Indication: LOW DENSITY LIPOPROTEIN INCREASED
     Dosage: UNK, (10 TO 20 MG DAILY)
     Route: 048
     Dates: start: 200612, end: 201104
  2. LIPITOR [Suspect]
     Dosage: 20 MG, DAILY
     Route: 048
     Dates: start: 201104, end: 201203
  3. ONE-A-DAY [Concomitant]
     Indication: VITAMIN SUPPLEMENTATION
     Dosage: 1 DF, UNK
     Dates: start: 2000
  4. FISH OIL [Concomitant]
     Indication: BLOOD CHOLESTEROL
     Dosage: 2 DF, UNK
     Dates: start: 2005
  5. FISH OIL [Concomitant]
     Indication: CARDIAC DISORDER

REACTIONS (1)
  - Type 2 diabetes mellitus [Unknown]
